FAERS Safety Report 15035243 (Version 1)
Quarter: 2018Q2

REPORT INFORMATION
  Report Type: Spontaneous
  Country: US (occurrence: US)
  Receive Date: 20180620
  Receipt Date: 20180620
  Transmission Date: 20180711
  Serious: No
  Sender: FDA-Public Use
  Company Number: US-AUROBINDO-AUR-APL-2018-013309

PATIENT
  Sex: Female

DRUGS (1)
  1. ATOMOXETINE CAPSULES USP 40 MG [Suspect]
     Active Substance: ATOMOXETINE
     Indication: PRODUCT USED FOR UNKNOWN INDICATION
     Dosage: UNK

REACTIONS (5)
  - Palpitations [Unknown]
  - Chest discomfort [Unknown]
  - Dry mouth [Unknown]
  - Insomnia [Unknown]
  - Increased appetite [Unknown]
